FAERS Safety Report 8125417-3 (Version None)
Quarter: 2012Q1

REPORT INFORMATION
  Report Type: 
  Country: None (occurrence: None)
  Receive Date: 20120209
  Receipt Date: 20120130
  Transmission Date: 20120608
  Serious: Yes (Hospitalization, Other)
  Sender: FDA-Public Use
  Company Number: JP-MERCK-1201USA01498

PATIENT
  Age: 16 Year
  Sex: Male
  Weight: 55 kg

DRUGS (2)
  1. PERIACTIN [Suspect]
     Indication: MIGRAINE
     Dosage: THE PATIENT WAS SUSPECTED TO HAVE 40 TABLETS
     Route: 048
     Dates: start: 20120105, end: 20120110
  2. ZOMIG [Concomitant]
     Indication: MIGRAINE
     Route: 048
     Dates: start: 20120105, end: 20120110

REACTIONS (2)
  - ALTERED STATE OF CONSCIOUSNESS [None]
  - OVERDOSE [None]
